FAERS Safety Report 4358390-4 (Version None)
Quarter: 2004Q2

REPORT INFORMATION
  Report Type: 
  Country: None (occurrence: None)
  Receive Date: 20040511
  Receipt Date: 20040430
  Transmission Date: 20050107
  Serious: Yes (Hospitalization)
  Sender: FDA-Public Use
  Company Number: US-JNJFOC-20040202245

PATIENT
  Age: 44 Year
  Sex: Female
  Weight: 72.5755 kg

DRUGS (9)
  1. TOPAMAX [Suspect]
     Indication: BACK PAIN
     Dosage: SEE IMAGE
     Dates: start: 20031101
  2. ALTACE [Concomitant]
  3. CARDIZEM [Concomitant]
  4. VIOXX [Concomitant]
  5. EFFEXOR [Concomitant]
  6. RELEFAN (NABUMETONE) [Concomitant]
  7. OXYCONTIN [Concomitant]
  8. ROBAXIN [Concomitant]
  9. KADIAN [Concomitant]

REACTIONS (8)
  - DISTURBANCE IN ATTENTION [None]
  - FAT NECROSIS [None]
  - HYPOAESTHESIA [None]
  - INSOMNIA [None]
  - INTERVERTEBRAL DISC DISORDER [None]
  - NIGHT SWEATS [None]
  - POST PROCEDURAL COMPLICATION [None]
  - TREMOR [None]
